FAERS Safety Report 19169561 (Version 2)
Quarter: 2021Q2

REPORT INFORMATION
  Report Type: Spontaneous
  Country: US (occurrence: US)
  Receive Date: 20210422
  Receipt Date: 20210429
  Transmission Date: 20210717
  Serious: Yes (Other)
  Sender: FDA-Public Use
  Company Number: US-RECKITT BENCKISER HEALTHCARE INT LIMITED-RB-86365-2021

PATIENT
  Age: 58 Year
  Sex: Male

DRUGS (4)
  1. MAXIMUM STRENGTH MUCINEX SINUS?MAX PRESSURE, PAIN AND COUGH [Suspect]
     Active Substance: ACETAMINOPHEN\DEXTROMETHORPHAN HYDROBROMIDE\GUAIFENESIN\PHENYLEPHRINE HYDROCHLORIDE
     Indication: PRODUCT USED FOR UNKNOWN INDICATION
     Dosage: UNK (AMOUNT USED: 2 TABLETS)
     Route: 065
     Dates: start: 202104
  2. MAXIMUM STRENGTH MUCINEX SINUS?MAX SEVERE CONGESTION AND PAIN [Suspect]
     Active Substance: ACETAMINOPHEN\GUAIFENESIN\PHENYLEPHRINE HYDROCHLORIDE
     Indication: PRODUCT USED FOR UNKNOWN INDICATION
     Dosage: UNK, (AMOUNT USED: 2 TABLETS)
     Route: 065
     Dates: start: 20210416
  3. PEDIALYTE CLASSIC GRAPE [Concomitant]
     Dosage: UNK
     Route: 065
  4. TYLENOL [Concomitant]
     Active Substance: ACETAMINOPHEN
     Indication: PRODUCT USED FOR UNKNOWN INDICATION
     Dosage: UNK
     Route: 065

REACTIONS (6)
  - Contraindicated product administered [Unknown]
  - Loss of consciousness [Unknown]
  - Injury [Unknown]
  - Malaise [Unknown]
  - Pyrexia [Unknown]
  - Ageusia [Unknown]

NARRATIVE: CASE EVENT DATE: 202104
